FAERS Safety Report 17155987 (Version 1)
Quarter: 2019Q4

REPORT INFORMATION
  Report Type: Spontaneous
  Country: US (occurrence: US)
  Receive Date: 20191216
  Receipt Date: 20191216
  Transmission Date: 20200122
  Serious: No
  Sender: FDA-Public Use
  Company Number: NVSC2019US009779

PATIENT
  Age: 17 Year
  Sex: Female

DRUGS (4)
  1. POLYHEXAMETHYLENE BIGUANIDE HYDROCHLORIDE [Suspect]
     Active Substance: POLIHEXANIDE HYDROCHLORIDE
     Indication: ACANTHAMOEBA KERATITIS
     Dosage: 0.02 %
     Route: 065
  2. VALACICLOVIR [Suspect]
     Active Substance: VALACYCLOVIR HYDROCHLORIDE
     Indication: ACANTHAMOEBA KERATITIS
     Dosage: 500 MG, BID
     Route: 065
  3. MOXIFLOXACIN. [Suspect]
     Active Substance: MOXIFLOXACIN
     Indication: ACANTHAMOEBA KERATITIS
     Dosage: 0.5 %
     Route: 061
  4. CYCLOPENTOLATE. [Suspect]
     Active Substance: CYCLOPENTOLATE
     Indication: ACANTHAMOEBA KERATITIS
     Dosage: 1 %
     Route: 065

REACTIONS (1)
  - Drug ineffective [Unknown]
